FAERS Safety Report 16356469 (Version 1)
Quarter: 2019Q2

REPORT INFORMATION
  Report Type: Spontaneous
  Country: US (occurrence: US)
  Receive Date: 20190527
  Receipt Date: 20190527
  Transmission Date: 20190711
  Serious: No
  Sender: FDA-Public Use
  Company Number: US-APOTEX-2019AP013383

PATIENT
  Age: 63 Year
  Sex: Male

DRUGS (2)
  1. FLUTICASONE. [Suspect]
     Active Substance: FLUTICASONE
     Indication: SINUS DISORDER
  2. FLUTICASONE. [Suspect]
     Active Substance: FLUTICASONE
     Indication: HYPERSENSITIVITY
     Dosage: TWO SPRAYS IN EACH NOSTRIL PER DAY
     Route: 045
     Dates: start: 20190426

REACTIONS (4)
  - Hypoaesthesia oral [Not Recovered/Not Resolved]
  - Eye injury [Not Recovered/Not Resolved]
  - Migraine with aura [Not Recovered/Not Resolved]
  - Migraine [Not Recovered/Not Resolved]

NARRATIVE: CASE EVENT DATE: 20190426
